FAERS Safety Report 17268372 (Version 1)
Quarter: 2020Q1

REPORT INFORMATION
  Report Type: Spontaneous
  Country: US (occurrence: US)
  Receive Date: 20191223
  Receipt Date: 20191223
  Transmission Date: 20200409
  Serious: No
  Sender: FDA-Public Use
  Company Number: None

PATIENT
  Age: 65 Year
  Sex: Female

DRUGS (1)
  1. ENTECAVIR TAB 1MG [Suspect]
     Active Substance: ENTECAVIR
     Route: 048
     Dates: start: 201909

REACTIONS (2)
  - Wrong technique in product usage process [None]
  - Product dose omission [None]

NARRATIVE: CASE EVENT DATE: 20191220
